FAERS Safety Report 4368663-7 (Version None)
Quarter: 2004Q2

REPORT INFORMATION
  Report Type: 
  Country: None (occurrence: None)
  Receive Date: 20040602
  Receipt Date: 20040311
  Transmission Date: 20050107
  Serious: Yes (Other)
  Sender: FDA-Public Use
  Company Number: 2003143292JP

PATIENT
  Age: 48 Year
  Sex: Male
  Weight: 90 kg

DRUGS (5)
  1. IDAMYCIN [Suspect]
     Indication: ACUTE MYELOID LEUKAEMIA
     Dosage: 12 MG/M2, QD, CYCLE 1; IV
     Route: 042
     Dates: start: 20000106, end: 20000108
  2. CYTOSAR-U [Suspect]
     Indication: ACUTE MYELOID LEUKAEMIA
     Dosage: 100 MG/M2, QD, CYDLE 1, IV
     Route: 042
     Dates: start: 20000106, end: 20000112
  3. AMIKACIN SULFATE [Concomitant]
  4. PENTCILLIN [Concomitant]
  5. ISEPAMICIN SULFATE [Concomitant]

REACTIONS (2)
  - CONDITION AGGRAVATED [None]
  - DISSEMINATED INTRAVASCULAR COAGULATION [None]
